FAERS Safety Report 5318826-9 (Version None)
Quarter: 2007Q2

REPORT INFORMATION
  Report Type: 
  Country: None (occurrence: None)
  Receive Date: 20070508
  Receipt Date: 20070424
  Transmission Date: 20071010
  Serious: Yes (Hospitalization)
  Sender: FDA-Public Use
  Company Number: SE-ELI_LILLY_AND_COMPANY-SE200702003668

PATIENT
  Age: 59 Year
  Sex: Male

DRUGS (5)
  1. ZYPREXA [Suspect]
     Indication: DEPRESSION
     Dosage: 5 MG, 3/D
     Route: 065
     Dates: start: 20041005, end: 20051228
  2. SOBRIL [Concomitant]
     Dosage: 15 MG, AS NEEDED
     Route: 065
  3. REMERON [Concomitant]
     Dosage: 30 MG, 2/D
     Route: 065
  4. CITALOPRAM HYDROBROMIDE [Concomitant]
     Dosage: 20 MG, 2/D
     Route: 065
  5. LITHIONIT [Concomitant]
     Dosage: 42 MG, 3/D
     Route: 065

REACTIONS (3)
  - FATIGUE [None]
  - HOSPITALISATION [None]
  - TRANSIENT ISCHAEMIC ATTACK [None]
